FAERS Safety Report 9482952 (Version 2)
Quarter: 2013Q3

REPORT INFORMATION
  Report Type: Spontaneous
  Country: CN (occurrence: CN)
  Receive Date: 20130828
  Receipt Date: 20130906
  Transmission Date: 20140515
  Serious: Yes (Hospitalization, Other)
  Sender: FDA-Public Use
  Company Number: CN-ACTELION-A-CH2013-87570

PATIENT
  Age: 5 Year
  Sex: Male
  Weight: 15 kg

DRUGS (7)
  1. TRACLEER [Suspect]
     Indication: PULMONARY ARTERIAL HYPERTENSION
     Dosage: 31.25 MG, BID
     Route: 048
     Dates: start: 20130720, end: 20130812
  2. ALPROSTADIL [Concomitant]
     Dosage: UNK
     Dates: start: 20130807, end: 20130810
  3. DOPAMINE [Concomitant]
     Dosage: UNK
     Dates: start: 20130807, end: 20130811
  4. SODIUM NITROPRUSSIDE [Concomitant]
     Dosage: UNK
     Dates: start: 20130807, end: 20130811
  5. DESLANOSIDE [Concomitant]
     Dosage: UNK
     Dates: start: 20130808, end: 20130812
  6. FUROSEMIDE [Concomitant]
     Dosage: UNK
     Dates: start: 20130808, end: 20130811
  7. CIMETIDINE [Concomitant]
     Dosage: UNK
     Dates: start: 20130807, end: 20130809

REACTIONS (2)
  - Thrombocytopenia [Recovered/Resolved]
  - Ventricular septal defect repair [Recovered/Resolved]
